FAERS Safety Report 10336443 (Version 1)
Quarter: 2014Q3

REPORT INFORMATION
  Report Type: Spontaneous
  Country: US (occurrence: US)
  Receive Date: 20140723
  Receipt Date: 20140723
  Transmission Date: 20150326
  Serious: No
  Sender: FDA-Public Use
  Company Number: US-BRISTOL-MYERS SQUIBB COMPANY-20639969

PATIENT
  Age: 82 Year
  Sex: Female

DRUGS (6)
  1. TEKTURNA [Concomitant]
     Active Substance: ALISKIREN HEMIFUMARATE
  2. COUMADIN [Suspect]
     Active Substance: WARFARIN SODIUM
  3. METOPROLOL [Concomitant]
     Active Substance: METOPROLOL
  4. POTASSIUM [Concomitant]
     Active Substance: POTASSIUM
  5. LANTUS [Concomitant]
     Active Substance: INSULIN GLARGINE
  6. LASIX [Concomitant]
     Active Substance: FUROSEMIDE

REACTIONS (1)
  - Localised infection [Unknown]
